FAERS Safety Report 6023894-5 (Version None)
Quarter: 2008Q4

REPORT INFORMATION
  Report Type: 
  Country: None (occurrence: None)
  Receive Date: 20081230
  Receipt Date: 20081218
  Transmission Date: 20090506
  Serious: Yes (Hospitalization)
  Sender: FDA-Public Use
  Company Number: FR-PFIZER INC-2008158907

PATIENT

DRUGS (10)
  1. XANAX [Suspect]
     Indication: ANXIETY
     Route: 048
     Dates: start: 20081005
  2. ZOLPIDEM TARTRATE [Suspect]
     Indication: INSOMNIA
     Route: 048
     Dates: start: 20080701, end: 20081001
  3. FUROSEMIDE [Concomitant]
  4. CARDENSIEL [Concomitant]
  5. POTASSIUM CHLORIDE [Concomitant]
  6. ELISOR [Concomitant]
  7. KARDEGIC [Concomitant]
  8. DIOSMECTITE [Concomitant]
  9. SPASMINE [Concomitant]
  10. MEBEVERINE [Concomitant]

REACTIONS (1)
  - DISTURBANCE IN ATTENTION [None]
